FAERS Safety Report 23448852 (Version 1)
Quarter: 2024Q1

REPORT INFORMATION
  Report Type: Spontaneous
  Country: BG (occurrence: BG)
  Receive Date: 20240128
  Receipt Date: 20240128
  Transmission Date: 20240410
  Serious: Yes (Hospitalization, Other)
  Sender: FDA-Public Use
  Company Number: BG-JNJFOC-20240152632

PATIENT
  Age: 59 Year
  Sex: Female
  Weight: 47 kg

DRUGS (6)
  1. STELARA [Suspect]
     Active Substance: USTEKINUMAB
     Indication: Psoriasis
     Route: 058
     Dates: start: 20160308, end: 20231127
  2. STELARA [Suspect]
     Active Substance: USTEKINUMAB
     Indication: Psoriatic arthropathy
  3. LOSARTAN POTASSIUM [Concomitant]
     Active Substance: LOSARTAN POTASSIUM
     Indication: Hypertension
  4. DROTAVERINE HYDROCHLORIDE [Concomitant]
     Active Substance: DROTAVERINE HYDROCHLORIDE
  5. KALINORM [Concomitant]
  6. MESALAMINE [Concomitant]
     Active Substance: MESALAMINE
     Dosage: 3G/DAY

REACTIONS (1)
  - Inflammatory bowel disease [Not Recovered/Not Resolved]
